FAERS Safety Report 10366900 (Version 1)
Quarter: 2014Q3

REPORT INFORMATION
  Report Type: Spontaneous
  Country: DK (occurrence: DK)
  Receive Date: 20140807
  Receipt Date: 20140807
  Transmission Date: 20150326
  Serious: Yes (Hospitalization, Disabling)
  Sender: FDA-Public Use
  Company Number: DK-UCBSA-2014007628

PATIENT
  Age: 75 Year
  Sex: Male
  Weight: 82 kg

DRUGS (6)
  1. KEPPRA [Suspect]
     Active Substance: LEVETIRACETAM
     Indication: EPILEPSY
     Dosage: 1000 MG, 4X/DAY (QID)
     Route: 048
     Dates: start: 20131120
  2. METOPROLOL SUCCINATE. [Concomitant]
     Active Substance: METOPROLOL SUCCINATE
     Indication: HYPERTENSION
  3. MANDOLGIN [Concomitant]
     Indication: PAIN
  4. VIMPAT [Suspect]
     Active Substance: LACOSAMIDE
     Indication: EPILEPSY
     Dosage: 200 MG, 2X/DAY (BID)
     Route: 048
     Dates: start: 20131120
  5. FURIX [Concomitant]
     Active Substance: FUROSEMIDE
     Indication: HYPOTENSION
     Dosage: UNK
  6. PANODIL [Concomitant]
     Active Substance: ACETAMINOPHEN
     Indication: PAIN

REACTIONS (3)
  - Somnolence [Recovering/Resolving]
  - Overdose [Unknown]
  - Mental retardation [Recovering/Resolving]

NARRATIVE: CASE EVENT DATE: 20131120
